FAERS Safety Report 15124573 (Version 1)
Quarter: 2018Q3

REPORT INFORMATION
  Report Type: Spontaneous
  Country: US (occurrence: US)
  Receive Date: 20180710
  Receipt Date: 20180710
  Transmission Date: 20181010
  Serious: No
  Sender: FDA-Public Use
  Company Number: US-PFIZER INC-2018273816

PATIENT
  Age: 41 Year
  Sex: Female

DRUGS (1)
  1. OXACILLIN SODIUM [Suspect]
     Active Substance: OXACILLIN SODIUM
     Indication: MASTOIDITIS
     Dosage: UNK
     Route: 042

REACTIONS (1)
  - Pyrexia [Unknown]
